FAERS Safety Report 6915138-4 (Version None)
Quarter: 2010Q3

REPORT INFORMATION
  Report Type: 
  Country: None (occurrence: None)
  Receive Date: 20100809
  Receipt Date: 20100726
  Transmission Date: 20110219
  Serious: Yes (Hospitalization, Other)
  Sender: FDA-Public Use
  Company Number: BR-MEDIMMUNE-MEDI-0011458

PATIENT
  Sex: Female
  Weight: 4.5 kg

DRUGS (3)
  1. SYNAGIS [Suspect]
     Indication: CARDIAC DISORDER
     Route: 030
     Dates: start: 20100528
  2. CAPTOPRIL [Concomitant]
     Route: 048
     Dates: start: 20100111
  3. FUROSEMIDE [Concomitant]
     Indication: GASTROINTESTINAL DISORDER
     Route: 048
     Dates: start: 20100111

REACTIONS (1)
  - CATARACT [None]
